FAERS Safety Report 15295447 (Version 1)
Quarter: 2018Q3

REPORT INFORMATION
  Report Type: Spontaneous
  Country: DK (occurrence: DK)
  Receive Date: 20180820
  Receipt Date: 20180820
  Transmission Date: 20181010
  Serious: Yes (Other)
  Sender: FDA-Public Use
  Company Number: PHHY2018DK072450

PATIENT
  Age: 43 Year
  Sex: Male

DRUGS (5)
  1. CIPROFLOXACIN. [Suspect]
     Active Substance: CIPROFLOXACIN
     Indication: URINARY TRACT INFECTION
     Dosage: 1000 MG, QD
     Route: 048
     Dates: start: 20180324
  2. PANODIL [Concomitant]
     Active Substance: ACETAMINOPHEN
     Indication: PAIN
     Dosage: DOSIS: 2 TABLETTER EFTER BEHOV, H?JST 4 GANGE DAGLIGT. STYRKE: 500 MG.
     Route: 048
  3. IBUMETIN [Concomitant]
     Active Substance: IBUPROFEN
     Indication: PAIN
     Dosage: DOSIS: 1 TABLET EFTER BEHOV, H?JST 3 GANGE DAGLIGT. STYRKE: 400 MG
     Route: 048
  4. DESLORATADINE. [Concomitant]
     Active Substance: DESLORATADINE
     Indication: PRURITUS
     Dosage: 5 MG, QD
     Route: 048
     Dates: start: 20180409
  5. BIOCLAVID [Suspect]
     Active Substance: AMOXICILLIN\CLAVULANIC ACID
     Indication: PNEUMONIA
     Dosage: DOSIS: UKENDT. STYRKE: 500 MG + 125 MG.
     Route: 048

REACTIONS (11)
  - Nausea [Unknown]
  - Yellow skin [Unknown]
  - Faeces pale [Unknown]
  - Food aversion [Unknown]
  - Chromaturia [Unknown]
  - Weight decreased [Unknown]
  - Pruritus [Unknown]
  - Jaundice [Unknown]
  - Fatigue [Unknown]
  - Cholestasis [Unknown]
  - Hepatic function abnormal [Unknown]

NARRATIVE: CASE EVENT DATE: 201803
